FAERS Safety Report 14216589 (Version 1)
Quarter: 2017Q4

REPORT INFORMATION
  Report Type: Report from Study
  Country: US (occurrence: US)
  Receive Date: 20171122
  Receipt Date: 20171122
  Transmission Date: 20180321
  Serious: Yes (Hospitalization)
  Sender: FDA-Public Use
  Company Number: US-ACTELION-A-US2016-136720

PATIENT
  Age: 22 Year
  Sex: Female
  Weight: 37.19 kg

DRUGS (3)
  1. WARFARIN [Concomitant]
     Active Substance: WARFARIN
  2. VELETRI [Suspect]
     Active Substance: EPOPROSTENOL
     Indication: PULMONARY HYPERTENSION
     Dosage: 10 NG/KG, PER MIN
     Route: 042
     Dates: start: 20160429
  3. RIOCIGUAT [Concomitant]
     Active Substance: RIOCIGUAT
     Indication: PULMONARY HYPERTENSION

REACTIONS (13)
  - Dyspnoea [Unknown]
  - Weight increased [Unknown]
  - Flushing [Unknown]
  - Nausea [Unknown]
  - Headache [Unknown]
  - Heart and lung transplant [Unknown]
  - Feeling hot [Unknown]
  - Pulmonary oedema [Unknown]
  - Pleural effusion [Unknown]
  - Hot flush [Unknown]
  - Weight decreased [Unknown]
  - Diarrhoea [Unknown]
  - Anaemia [Unknown]
